FAERS Safety Report 5064777-7 (Version None)
Quarter: 2006Q3

REPORT INFORMATION
  Report Type: 
  Country: None (occurrence: None)
  Receive Date: 20060728
  Receipt Date: 20060724
  Transmission Date: 20061208
  Serious: Yes (Hospitalization)
  Sender: FDA-Public Use
  Company Number: PHRM2006FR02174

PATIENT
  Age: 34 Year
  Sex: Female

DRUGS (5)
  1. LIORESAL [Suspect]
     Dosage: 40 MG/DAY
     Route: 048
  2. SEROPRAM [Suspect]
     Route: 048
     Dates: end: 20060618
  3. ACETAMINOPHEN [Suspect]
     Dosage: 3 DF/DAY
     Route: 048
  4. BACTRIM DS [Suspect]
     Indication: WHIPPLE'S DISEASE
     Dosage: 2 DF/DAY
     Route: 048
  5. TEGRETOL [Suspect]
     Dosage: 800 MG/DAY
     Route: 048

REACTIONS (4)
  - BLOOD SODIUM DECREASED [None]
  - EPILEPSY [None]
  - FLUID INTAKE RESTRICTION [None]
  - HYPONATRAEMIA [None]
